FAERS Safety Report 20725773 (Version 3)
Quarter: 2022Q4

REPORT INFORMATION
  Report Type: Spontaneous
  Country: US (occurrence: US)
  Receive Date: 20220419
  Receipt Date: 20221003
  Transmission Date: 20230112
  Serious: No
  Sender: FDA-Public Use
  Company Number: US-SA-SAC20220412001647

PATIENT
  Age: 21 Year
  Sex: Female

DRUGS (1)
  1. DUPIXENT [Suspect]
     Active Substance: DUPILUMAB
     Indication: Dermatitis atopic
     Dosage: 300 MG, QOW
     Route: 058
     Dates: start: 20210421

REACTIONS (5)
  - General physical condition abnormal [Unknown]
  - Mental disorder [Unknown]
  - Skin exfoliation [Unknown]
  - Eye swelling [Unknown]
  - Eye pruritus [Unknown]
